FAERS Safety Report 11750536 (Version 1)
Quarter: 2015Q4

REPORT INFORMATION
  Report Type: Spontaneous
  Country: US (occurrence: None)
  Receive Date: 20151117
  Receipt Date: 20151117
  Transmission Date: 20160304
  Serious: Yes (Hospitalization)
  Sender: FDA-Public Use
  Company Number: None

PATIENT
  Age: 53 Year
  Sex: Male
  Weight: 50.3 kg

DRUGS (11)
  1. CERTA PLUS [Concomitant]
  2. OMEPRAZOLE. [Concomitant]
     Active Substance: OMEPRAZOLE
  3. RIVASTIGMINE. [Concomitant]
     Active Substance: RIVASTIGMINE
  4. SIMVASTATIN. [Concomitant]
     Active Substance: SIMVASTATIN
  5. LAMOTRIGINE. [Suspect]
     Active Substance: LAMOTRIGINE
     Indication: SEIZURE
     Route: 048
     Dates: start: 20150716, end: 20150720
  6. ACETAMINOPHEN. [Concomitant]
     Active Substance: ACETAMINOPHEN
  7. FOLBIC [Concomitant]
     Active Substance: CYANOCOBALAMIN\FOLIC ACID\PYRIDOXINE
  8. LAMOTRIGINE. [Concomitant]
     Active Substance: LAMOTRIGINE
  9. PAROXETINE [Concomitant]
     Active Substance: PAROXETINE\PAROXETINE HYDROCHLORIDE
  10. DENOSUMAB [Concomitant]
     Active Substance: DENOSUMAB
  11. MELOXICAM. [Concomitant]
     Active Substance: MELOXICAM

REACTIONS (6)
  - Dyskinesia [None]
  - Rash macular [None]
  - Dizziness [None]
  - Muscle twitching [None]
  - Sedation [None]
  - Fall [None]

NARRATIVE: CASE EVENT DATE: 20150720
